FAERS Safety Report 9238457 (Version 2)
Quarter: 2013Q3

REPORT INFORMATION
  Report Type: Spontaneous
  Country: US (occurrence: None)
  Receive Date: 20130416
  Receipt Date: 20130813
  Transmission Date: 20140515
  Serious: Yes (Other)
  Sender: FDA-Public Use
  Company Number: ACO_35421_2013

PATIENT
  Age: 50 Year
  Sex: Female
  Weight: 58 kg

DRUGS (25)
  1. AMPYRA [Suspect]
     Indication: PRODUCT USED FOR UNKNOWN INDICATION
     Route: 048
     Dates: start: 201010
  2. MELOXICAM (MELOXICAM) [Concomitant]
  3. TAMOXIFEN (TAMOXIFEN CITRATE) [Concomitant]
  4. NEURONTIN (GABAPENTIN) [Concomitant]
  5. LAMOTRIGINE (LAMOTRIGINE) [Concomitant]
  6. METOCLOPRAMIDE (METOCLOPRAMIDE HYDROCHLORIDE) [Concomitant]
  7. TIZANIDINE (TIZANIDINE HYDROCHLORIDE) [Concomitant]
  8. BACLOFEN (BACLOFEN) [Concomitant]
  9. NITROFURANTOIN [Concomitant]
  10. ESCITALOPRAM (ESCITALOPRAM) [Concomitant]
  11. MULTIVITAMIN (VITAMINS NOS) [Concomitant]
  12. POTASSIUM (POTASSIUM BICARBONATE, POTASSIUM CHLORIDE) [Concomitant]
  13. VITAMIN B-12 (CYANOCOBALAMIN) [Concomitant]
  14. FISH OIL (FISH OIL) [Concomitant]
  15. ARICEPT (DONEPEZIL HYDROCHLORIDE) [Concomitant]
  16. PROVIGIL (MODAFINIL) [Concomitant]
  17. BIOTIN (BIOTIN) [Concomitant]
  18. COQ-10 (UBIDECARENONE) [Concomitant]
  19. IMODIUM (LOPERAMIDE HYDROCHLORIDE) [Concomitant]
  20. INDOCIN (INDOMETACIN) [Concomitant]
  21. VITAMIN B 2 (RIBOFLAVIN) [Concomitant]
  22. VITAMIN D (ERGOCALCIFEROL) [Concomitant]
  23. VITAMIN C [Concomitant]
  24. KLONOPIN (CLONAZEPAM) [Concomitant]
  25. DEXEDRINE (DEXAMFETAMINE SULFATE) [Concomitant]

REACTIONS (6)
  - Breast cancer [None]
  - Pyrexia [None]
  - Nasopharyngitis [None]
  - Oropharyngeal pain [None]
  - Extra dose administered [None]
  - Medication error [None]
